FAERS Safety Report 8511279 (Version 2)
Quarter: 2014Q1

REPORT INFORMATION
  Report Type: Spontaneous
  Country: US (occurrence: US)
  Receive Date: 20120413
  Receipt Date: 20140114
  Transmission Date: 20141002
  Serious: No
  Sender: FDA-Public Use
  Company Number: US-ASTRAZENECA-2011SE66073

PATIENT
  Age: 32 Year
  Sex: Female
  Weight: 93.9 kg

DRUGS (4)
  1. NEXIUM [Suspect]
     Indication: DYSPEPSIA
     Route: 048
     Dates: start: 2011, end: 201310
  2. OMEPRAZOLE OTC [Suspect]
     Indication: DYSPEPSIA
     Route: 048
     Dates: start: 201310, end: 201312
  3. OMEPRAZOLE OTC [Suspect]
     Indication: DYSPEPSIA
     Route: 048
  4. CANNABIS [Concomitant]
     Indication: PAIN
     Dosage: UNKNOWN TID
     Route: 055
     Dates: start: 201309

REACTIONS (7)
  - Weight decreased [Not Recovered/Not Resolved]
  - Oropharyngeal pain [Unknown]
  - Dyspepsia [Unknown]
  - Malaise [Unknown]
  - Intentional drug misuse [Unknown]
  - Drug dose omission [Unknown]
  - Drug ineffective [Not Recovered/Not Resolved]
